FAERS Safety Report 16474257 (Version 3)
Quarter: 2019Q3

REPORT INFORMATION
  Report Type: Spontaneous
  Country: US (occurrence: US)
  Receive Date: 20190625
  Receipt Date: 20190930
  Transmission Date: 20191004
  Serious: No
  Sender: FDA-Public Use
  Company Number: US-PFIZER INC-2019270334

PATIENT
  Age: 75 Year
  Sex: Female
  Weight: 95.2 kg

DRUGS (22)
  1. METOLAZONE. [Concomitant]
     Active Substance: METOLAZONE
     Dosage: 5 MG, DAILY
     Route: 048
  2. IBRANCE [Suspect]
     Active Substance: PALBOCICLIB
     Indication: BREAST CANCER FEMALE
     Dosage: 125 MG, CYCLIC (21 DAYS ON AND 7 DAYS OFF)
     Route: 048
  3. AMITRIPTYLINE HCL [Concomitant]
     Active Substance: AMITRIPTYLINE
     Dosage: 50 MG, 1X/DAY (TAKE 1 TABLET AT BEDTIME)
  4. LETROZOLE. [Concomitant]
     Active Substance: LETROZOLE
     Dosage: 2.5 MG, DAILY
     Route: 048
  5. ROPINIROLE HCL [Concomitant]
     Active Substance: ROPINIROLE HYDROCHLORIDE
     Dosage: 1 MG, DAILY
     Route: 048
  6. GABAPENTIN. [Concomitant]
     Active Substance: GABAPENTIN
     Dosage: 600 MG, 3X/DAY (AS NEEDED)
  7. WARFARIN SODIUM. [Concomitant]
     Active Substance: WARFARIN SODIUM
     Dosage: 5 MG, DAILY (TAKE 1 AS DIRECTED DAILY)
     Route: 048
  8. MECLIZINE HCL [Concomitant]
     Active Substance: MECLIZINE HYDROCHLORIDE
     Dosage: 25 MG, AS NEEDED
  9. FUROSEMIDE. [Concomitant]
     Active Substance: FUROSEMIDE
     Dosage: 80 MG, 1X/DAY (40 MG ORAL TABLET: TAKE 2 TABLET ONCE DAILY)
     Route: 048
  10. HYDROCODONE/PARACETAMOL [Concomitant]
     Dosage: UNK, AS NEEDED (7.5-325 MG ORAL TABLET: TAKE 1-2 TABLET EVERY 6 HOUR AS NEEDED)
     Route: 048
  11. SIMVASTATIN. [Concomitant]
     Active Substance: SIMVASTATIN
     Dosage: 40 MG, DAILY
     Route: 048
  12. SLOW MAG [MAGNESIUM CHLORIDE] [Concomitant]
     Active Substance: MAGNESIUM CHLORIDE
     Dosage: UNK UNK, WEEKLY (1/2 TABLET PER WEEK)
  13. IRON [Concomitant]
     Active Substance: IRON
     Dosage: UNK UNK, ALTERNATE DAY (1 TABLET EVERY OTHER DAY)
  14. FENTANYL. [Concomitant]
     Active Substance: FENTANYL
     Dosage: UNK (APPLY 1 PATCH EVERY 3 DAYS)
     Route: 062
  15. IBRANCE [Suspect]
     Active Substance: PALBOCICLIB
     Dosage: 5 MG, CYCLIC ((21 DAYS AND 7 DAYS OFF))
  16. POTASSIUM CHLORIDE. [Concomitant]
     Active Substance: POTASSIUM CHLORIDE
     Dosage: 10 MEQ, 3X/DAY
     Route: 048
  17. GLIMEPIRIDE. [Concomitant]
     Active Substance: GLIMEPIRIDE
     Dosage: 2 MG, DAILY
  18. ARICEPT [Concomitant]
     Active Substance: DONEPEZIL HYDROCHLORIDE
     Dosage: 5 MG, DAILY (TAKE 1 TABLET DAILY AS DIRECTED)
     Route: 048
  19. PROPRANOLOL HCL [Concomitant]
     Active Substance: PROPRANOLOL HYDROCHLORIDE
     Dosage: 80 MG, DAILY
     Route: 048
  20. DRONABINOL. [Concomitant]
     Active Substance: DRONABINOL
     Dosage: 5 MG, DAILY (2.5 MG: TAKE 2 TABLETS DAILY)
  21. VITAMIN B12 [Concomitant]
     Active Substance: CYANOCOBALAMIN
  22. CYCLOBENZAPRINE HCL [Concomitant]
     Active Substance: CYCLOBENZAPRINE HYDROCHLORIDE
     Dosage: 5 MG, AS NEEDED (TAKE 1 TABLET 3 TIMES DAILY AS NEEDED)
     Route: 048

REACTIONS (3)
  - Diarrhoea [Not Recovered/Not Resolved]
  - Neoplasm progression [Not Recovered/Not Resolved]
  - Nausea [Not Recovered/Not Resolved]

NARRATIVE: CASE EVENT DATE: 201906
